FAERS Safety Report 22388814 (Version 1)
Quarter: 2023Q2

REPORT INFORMATION
  Report Type: Report from Study
  Country: US (occurrence: None)
  Receive Date: 20230531
  Receipt Date: 20230531
  Transmission Date: 20230722
  Serious: Yes (Other)
  Sender: FDA-Public Use
  Company Number: 2023A122313

PATIENT
  Sex: Female

DRUGS (1)
  1. LYNPARZA [Suspect]
     Active Substance: OLAPARIB
     Route: 048

REACTIONS (7)
  - Dysarthria [Unknown]
  - Slow speech [Unknown]
  - Feeling abnormal [Unknown]
  - Arthralgia [Unknown]
  - Fatigue [Unknown]
  - Pain [Unknown]
  - Vomiting [Unknown]
